FAERS Safety Report 18785644 (Version 1)
Quarter: 2021Q1

REPORT INFORMATION
  Report Type: Spontaneous
  Country: ES (occurrence: ES)
  Receive Date: 20210125
  Receipt Date: 20210125
  Transmission Date: 20210419
  Serious: Yes (Life-Threatening, Hospitalization, Other)
  Sender: FDA-Public Use
  Company Number: ES-BAYER-2020-245610

PATIENT
  Age: 38 Year
  Sex: Female

DRUGS (1)
  1. KYLEENA [Suspect]
     Active Substance: LEVONORGESTREL
     Dosage: 17.5 ?G PER DAY CONTINUOUSLY
     Route: 015
     Dates: start: 20181122, end: 202010

REACTIONS (11)
  - Induced abortion haemorrhage [None]
  - Pregnancy with contraceptive device [None]
  - Induced abortion haemorrhage [None]
  - Blood loss anaemia [Not Recovered/Not Resolved]
  - Internal haemorrhage [None]
  - Shock [None]
  - Drug ineffective [None]
  - Pelvic discomfort [None]
  - Abortion missed [None]
  - Haemorrhage in pregnancy [None]
  - Abdominal pain lower [None]

NARRATIVE: CASE EVENT DATE: 202010
